FAERS Safety Report 8937367 (Version 1)
Quarter: 2012Q4

REPORT INFORMATION
  Report Type: Spontaneous
  Country: US (occurrence: None)
  Receive Date: 20121128
  Receipt Date: 20121128
  Transmission Date: 20130627
  Serious: No
  Sender: FDA-Public Use
  Company Number: None

PATIENT
  Age: 56 Year
  Sex: Male
  Weight: 74.84 kg

DRUGS (1)
  1. VICTRELIS 200MG MERCK [Suspect]
     Indication: HEPATITIS C
     Dosage: 800mg three times a day po
     Route: 048

REACTIONS (1)
  - Rash [None]
